FAERS Safety Report 9826135 (Version 1)
Quarter: 2013Q4

REPORT INFORMATION
  Report Type: Spontaneous
  Country: US (occurrence: None)
  Receive Date: 20131104
  Receipt Date: 20131104
  Transmission Date: 20140711
  Serious: Yes (Other)
  Sender: FDA-Public Use
  Company Number: 1000047454

PATIENT
  Age: 69 Year
  Sex: Female

DRUGS (13)
  1. DALIRESP [Suspect]
     Indication: CHRONIC OBSTRUCTIVE PULMONARY DISEASE
     Dosage: 500 MCG (500 MCG, 1 IN 1 D), ORAL
     Route: 048
     Dates: start: 20130724
  2. VENLAFAXINE (VENLAFAXINE) (VENLAFAXINE)? [Concomitant]
  3. MICARDIS (TELMISARTAN) (TELMISARTAN) [Concomitant]
  4. FUROSEMIDE (FUROSEMIDE) (FUROSEMIDE) [Concomitant]
  5. POTASSIUM CHLORIDE (POTASSIUM CHLORIDE) (POTASSIUM CHLORIDE) [Concomitant]
  6. VITAMINS NOS (VITAMINS NOS) (VITAMINS NOS) [Concomitant]
  7. ALPRAZOLAM ALPRAZOLAM)  (ALPRAZOLAM) [Concomitant]
  8. DEXILANT (DEXLANSOPRAZOLE) (DEXLANSOPRAZOLE) [Concomitant]
  9. LEVOTHYROXINE (LEVOTHYROXINE SODIUM) (LEVOTHYROXINE SODIUM) [Concomitant]
  10. GABAPENTIN (GABAPENTIN) (GABAPENTIN) [Concomitant]
  11. ZOLPIDEM (ZOLPIDEM) (ZOLPIDEM) [Concomitant]
  12. SEROQUEL (QUETIAPINE FUMARATE) (QUETIAPINE FUMARATE) [Concomitant]
  13. DULERA (DULERA) (DULERA) [Concomitant]

REACTIONS (6)
  - Diarrhoea [None]
  - Nausea [None]
  - Influenza like illness [None]
  - Ageusia [None]
  - Asthenia [None]
  - Dizziness [None]
